FAERS Safety Report 4484404-7 (Version None)
Quarter: 2004Q4

REPORT INFORMATION
  Report Type: 
  Country: None (occurrence: None)
  Receive Date: 20041025
  Receipt Date: 20041012
  Transmission Date: 20050328
  Serious: Yes (Other)
  Sender: FDA-Public Use
  Company Number: PHHO2004CA14472

PATIENT
  Age: 18 Year
  Sex: Female

DRUGS (1)
  1. ELIDEL [Suspect]
     Indication: DERMATITIS ATOPIC
     Dosage: NOT REPORTED
     Route: 061
     Dates: end: 20041007

REACTIONS (3)
  - BURNING SENSATION [None]
  - RASH GENERALISED [None]
  - SCAB [None]
